FAERS Safety Report 14473251 (Version 2)
Quarter: 2018Q1

REPORT INFORMATION
  Report Type: Report from Study
  Country: US (occurrence: US)
  Receive Date: 20180201
  Receipt Date: 20180320
  Transmission Date: 20180509
  Serious: Yes (Hospitalization, Other)
  Sender: FDA-Public Use
  Company Number: US-B.I. PHARMACEUTICALS,INC./RIDGEFIELD-2018-BI-005408

PATIENT
  Sex: Male

DRUGS (1)
  1. OFEV [Suspect]
     Active Substance: NINTEDANIB
     Indication: IDIOPATHIC PULMONARY FIBROSIS
     Route: 048
     Dates: start: 20180126

REACTIONS (12)
  - Fall [Unknown]
  - Viral infection [Unknown]
  - Concussion [Unknown]
  - Cough [Unknown]
  - Dyspnoea exertional [Unknown]
  - Neoplasm malignant [Unknown]
  - Weight decreased [Unknown]
  - Nasal ulcer [Unknown]
  - Haemorrhage intracranial [Unknown]
  - Epistaxis [Unknown]
  - Diarrhoea [Unknown]
  - Dyspnoea [Unknown]
